FAERS Safety Report 8015875-7 (Version None)
Quarter: 2011Q4

REPORT INFORMATION
  Report Type: 
  Country: None (occurrence: None)
  Receive Date: 20111228
  Receipt Date: 20111228
  Transmission Date: 20120403
  Serious: Yes (Hospitalization)
  Sender: FDA-Public Use
  Company Number: None

PATIENT
  Sex: Male
  Weight: 88 kg

DRUGS (10)
  1. SERTRALINE HCL [Concomitant]
  2. VALCYTE [Concomitant]
  3. LANTUS [Concomitant]
  4. REGULAR INSULIN [Concomitant]
  5. MULTI-VITAMIN [Concomitant]
  6. POTASSIUM CHLORIDE [Concomitant]
  7. BELATACEPT 250 MG VIALS BRISTOL-MYERS SQUIBB [Suspect]
     Indication: IMMUNOSUPPRESSION
     Dosage: 10 MG/KG
     Dates: start: 20111028
  8. BACTRIM [Concomitant]
  9. KHOS NEUTRAL [Concomitant]
  10. RAPAMUNE [Concomitant]

REACTIONS (2)
  - INCISION SITE PAIN [None]
  - INCISION SITE HAEMATOMA [None]
